FAERS Safety Report 13651790 (Version 2)
Quarter: 2017Q2

REPORT INFORMATION
  Report Type: Spontaneous
  Country: IR (occurrence: IR)
  Receive Date: 20170614
  Receipt Date: 20170615
  Transmission Date: 20170830
  Serious: Yes (Hospitalization)
  Sender: FDA-Public Use
  Company Number: IR-SA-2017SA101092

PATIENT
  Age: 65 Year
  Sex: Male

DRUGS (2)
  1. BCG FOR IMMUNOTHERAPY [Suspect]
     Active Substance: BACILLUS CALMETTE-GUERIN ANTIGEN, UNSPECIFIED SUBSTRAIN
     Indication: BLADDER CANCER
     Route: 043
  2. BCG FOR IMMUNOTHERAPY [Suspect]
     Active Substance: BACILLUS CALMETTE-GUERIN ANTIGEN, UNSPECIFIED SUBSTRAIN
     Indication: BLADDER CANCER
     Route: 043

REACTIONS (4)
  - Hepatic failure [Recovered/Resolved]
  - Tuberculosis liver [Recovered/Resolved]
  - Jaundice [Recovered/Resolved]
  - Pyrexia [Recovered/Resolved]
